FAERS Safety Report 19758292 (Version 1)
Quarter: 2021Q3

REPORT INFORMATION
  Report Type: Spontaneous
  Country: GT (occurrence: GT)
  Receive Date: 20210828
  Receipt Date: 20210828
  Transmission Date: 20211014
  Serious: Yes (Death, Hospitalization)
  Sender: FDA-Public Use
  Company Number: NVSC2021GT195110

PATIENT
  Age: 53 Year
  Sex: Male

DRUGS (1)
  1. GLIVEC [Suspect]
     Active Substance: IMATINIB MESYLATE
     Indication: CHRONIC MYELOID LEUKAEMIA
     Dosage: 400 MG (X 1)
     Route: 065

REACTIONS (2)
  - Pneumonia [Fatal]
  - Ill-defined disorder [Unknown]

NARRATIVE: CASE EVENT DATE: 20210818
